FAERS Safety Report 4497080-4 (Version None)
Quarter: 2004Q4

REPORT INFORMATION
  Report Type: 
  Country: None (occurrence: None)
  Receive Date: 20041110
  Receipt Date: 20041102
  Transmission Date: 20050328
  Serious: Yes (Hospitalization)
  Sender: FDA-Public Use
  Company Number: US-JNJFOC-20041100952

PATIENT
  Sex: Female
  Weight: 60.78 kg

DRUGS (12)
  1. REMICADE [Suspect]
     Indication: RHEUMATOID ARTHRITIS
     Route: 042
     Dates: start: 20040201
  2. PERCOCET [Concomitant]
  3. PERCOCET [Concomitant]
     Indication: PAIN
  4. TYLENOL [Concomitant]
     Indication: PAIN
  5. GLUCOPHAGE [Concomitant]
  6. ALTACE [Concomitant]
  7. LIPITOR [Concomitant]
  8. VITAMIN B6 [Concomitant]
  9. VITAMIN B6 [Concomitant]
  10. VITAMIN B6 [Concomitant]
  11. VITAMIN B6 [Concomitant]
  12. VITAMIN B6 [Concomitant]

REACTIONS (5)
  - CONFUSIONAL STATE [None]
  - HEADACHE [None]
  - LOSS OF CONSCIOUSNESS [None]
  - SOMNOLENCE [None]
  - THIRST [None]
